FAERS Safety Report 9937270 (Version 1)
Quarter: 2014Q1

REPORT INFORMATION
  Report Type: Report from Study
  Country: TR (occurrence: TR)
  Receive Date: 20140302
  Receipt Date: 20140302
  Transmission Date: 20141002
  Serious: Yes (Other)
  Sender: FDA-Public Use
  Company Number: TR-US-EMD SERONO, INC.-7271329

PATIENT
  Sex: Female
  Weight: 68 kg

DRUGS (5)
  1. REBIF [Suspect]
     Indication: MULTIPLE SCLEROSIS
  2. CATAFLAM /00372302/ [Suspect]
     Indication: ANALGESIC THERAPY
  3. DOLOREX /00068902/ [Suspect]
     Indication: ANALGESIC THERAPY
  4. NEXIUM /01479302/ [Suspect]
     Indication: ULCER
  5. DEXKETOPROFEN [Suspect]
     Indication: ANALGESIC THERAPY

REACTIONS (8)
  - Diabetes mellitus [Not Recovered/Not Resolved]
  - Trigeminal neuralgia [Not Recovered/Not Resolved]
  - Migraine [Not Recovered/Not Resolved]
  - Blood cholesterol increased [Not Recovered/Not Resolved]
  - Injection site erythema [Not Recovered/Not Resolved]
  - Injection site pain [Not Recovered/Not Resolved]
  - Injection site bruising [Not Recovered/Not Resolved]
  - Injection site mass [Not Recovered/Not Resolved]
